FAERS Safety Report 17278158 (Version 2)
Quarter: 2020Q1

REPORT INFORMATION
  Report Type: Spontaneous
  Country: AT (occurrence: AT)
  Receive Date: 20200116
  Receipt Date: 20200221
  Transmission Date: 20200409
  Serious: No
  Sender: FDA-Public Use
  Company Number: AT-INCYTE CORPORATION-2020IN000358

PATIENT

DRUGS (1)
  1. JAKAVI [Suspect]
     Active Substance: RUXOLITINIB
     Indication: POLYCYTHAEMIA VERA
     Dosage: 20 MG, BID (2X 1)
     Route: 048
     Dates: start: 201605

REACTIONS (1)
  - Therapeutic response unexpected [Unknown]
